FAERS Safety Report 8370827-2 (Version None)
Quarter: 2012Q2

REPORT INFORMATION
  Report Type: 
  Country: None (occurrence: None)
  Receive Date: 20120518
  Receipt Date: 20120307
  Transmission Date: 20120825
  Serious: No
  Sender: FDA-Public Use
  Company Number: US-ASTRAZENECA-2012SE17736

PATIENT
  Sex: Female

DRUGS (3)
  1. MULTI-VITAMINS [Concomitant]
     Dosage: UNKNOWN
  2. PRILOSEC OTC [Suspect]
     Indication: ULCER
     Route: 048
  3. THYROID THERAPY [Concomitant]
     Dosage: UNKNOWN

REACTIONS (1)
  - THIRST [None]
